FAERS Safety Report 7782041-X (Version None)
Quarter: 2011Q3

REPORT INFORMATION
  Report Type: 
  Country: None (occurrence: None)
  Receive Date: 20110927
  Receipt Date: 20110914
  Transmission Date: 20111222
  Serious: Yes (Other)
  Sender: FDA-Public Use
  Company Number: PHEH2011US04256

PATIENT
  Age: 81 Year
  Sex: Male

DRUGS (5)
  1. DIOVAN HCT [Suspect]
     Dosage: 1 DF (160 MG VALSARTAN AND 25 MG HYDROCHLOROTHIAZIDE)
  2. NEXIUM [Concomitant]
     Dosage: 40 MG, (AS NEEDED)
  3. DEPAKOTE [Concomitant]
     Dosage: 500 MG, BID
  4. VITAMIN TAB [Concomitant]
  5. FERROUS SULFATE TAB [Concomitant]
     Dosage: 325 MG, QD

REACTIONS (2)
  - LARYNGITIS [None]
  - CATARACT [None]
